FAERS Safety Report 19370466 (Version 3)
Quarter: 2024Q2

REPORT INFORMATION
  Report Type: Spontaneous
  Country: US (occurrence: US)
  Receive Date: 20210604
  Receipt Date: 20240619
  Transmission Date: 20240715
  Serious: No
  Sender: FDA-Public Use
  Company Number: US-SA-SAC20210531001071

PATIENT
  Age: 47 Year
  Sex: Female

DRUGS (6)
  1. CERDELGA [Suspect]
     Active Substance: ELIGLUSTAT
     Indication: Lipidosis
     Dosage: 84 MG, BID
     Route: 048
     Dates: start: 20200212
  2. CERDELGA [Suspect]
     Active Substance: ELIGLUSTAT
     Indication: Gaucher^s disease
     Dosage: 84 MG, BID
     Route: 048
  3. LACTOBACILLUS ACIDOPHILUS [Concomitant]
     Active Substance: LACTOBACILLUS ACIDOPHILUS
     Dosage: UNK
  4. OXALIPLATIN [Concomitant]
     Active Substance: OXALIPLATIN
     Dosage: UNK
  5. MONTELUKAST SODIUM [Concomitant]
     Active Substance: MONTELUKAST SODIUM
     Dosage: UNK
  6. PANTOPRAZOLE SODIUM [Concomitant]
     Active Substance: PANTOPRAZOLE SODIUM
     Dosage: UNK

REACTIONS (4)
  - Dyspepsia [Unknown]
  - Chemotherapy [Unknown]
  - Product dose omission in error [Unknown]
  - Treatment noncompliance [Unknown]
